FAERS Safety Report 18875675 (Version 1)
Quarter: 2021Q1

REPORT INFORMATION
  Report Type: Spontaneous
  Country: US (occurrence: US)
  Receive Date: 20210211
  Receipt Date: 20210211
  Transmission Date: 20210420
  Serious: No
  Sender: FDA-Public Use
  Company Number: NVSC2021US031311

PATIENT
  Sex: Female

DRUGS (2)
  1. MEKINIST [Suspect]
     Active Substance: TRAMETINIB DIMETHYL SULFOXIDE
     Indication: SOFT TISSUE NEOPLASM
     Dosage: 0.4 MG, QD
     Route: 048
     Dates: start: 20210106
  2. MEKINIST [Suspect]
     Active Substance: TRAMETINIB DIMETHYL SULFOXIDE
     Indication: CONNECTIVE TISSUE NEOPLASM

REACTIONS (3)
  - Product use issue [Unknown]
  - Pyrexia [Unknown]
  - Product use in unapproved indication [Unknown]
